FAERS Safety Report 24277129 (Version 3)
Quarter: 2025Q3

REPORT INFORMATION
  Report Type: Report from Study
  Country: US (occurrence: US)
  Receive Date: 20240903
  Receipt Date: 20250816
  Transmission Date: 20251020
  Serious: No
  Sender: ALEXION PHARMACEUTICALS
  Company Number: US-AstraZeneca-CH-00696029A

PATIENT
  Age: 53 Year
  Sex: Male

DRUGS (6)
  1. SOLIRIS [Suspect]
     Active Substance: ECULIZUMAB
     Indication: Myasthenia gravis
     Route: 065
  2. PREDNISONE [Suspect]
     Active Substance: PREDNISONE
     Indication: Product used for unknown indication
     Dosage: UNK UNK, QD, ONE PILL A DAY
     Route: 065
  3. PREDNISONE [Suspect]
     Active Substance: PREDNISONE
     Dosage: UNK UNK, QD, HALF PILL
     Route: 065
  4. PREDNISONE [Suspect]
     Active Substance: PREDNISONE
     Dosage: UNK UNK, QD, FOURTH OF A PILL
     Route: 065
     Dates: end: 20240830
  5. MESTINON [Suspect]
     Active Substance: PYRIDOSTIGMINE BROMIDE
     Indication: Product used for unknown indication
     Dosage: 8 PILL, QD
     Route: 065
  6. MESTINON [Suspect]
     Active Substance: PYRIDOSTIGMINE BROMIDE
     Dosage: 4 PILL, QD
     Route: 065

REACTIONS (8)
  - Withdrawal syndrome [Unknown]
  - Diarrhoea [Unknown]
  - Urinary incontinence [Not Recovered/Not Resolved]
  - Anal incontinence [Unknown]
  - Asthenia [Unknown]
  - Fatigue [Unknown]
  - Feeling hot [Unknown]
  - Hyperhidrosis [Unknown]
